FAERS Safety Report 18189318 (Version 1)
Quarter: 2020Q3

REPORT INFORMATION
  Report Type: Spontaneous
  Country: US (occurrence: US)
  Receive Date: 20200824
  Receipt Date: 20200824
  Transmission Date: 20201103
  Serious: Yes (Other)
  Sender: FDA-Public Use
  Company Number: US-TARO-2020TAR01333

PATIENT
  Age: 44 Year
  Sex: Male

DRUGS (2)
  1. TRETINOIN. [Suspect]
     Active Substance: TRETINOIN
     Indication: ACNE
     Dosage: DAILY, FOR ABOUT THREE YEARS, FROM AGE 15
     Route: 061
  2. ISOTRETINOIN. [Suspect]
     Active Substance: ISOTRETINOIN
     Indication: ACNE
     Dosage: DAILY, FOR ABOUT THREE YEARS, FROM AGE 15
     Route: 048

REACTIONS (6)
  - Suicidal ideation [Recovered/Resolved]
  - Lip dry [Unknown]
  - Ciliary body melanoma [Recovered/Resolved]
  - Depression [Recovered/Resolved]
  - Thermal burn [Unknown]
  - Chapped lips [Unknown]
